FAERS Safety Report 5410241-2 (Version None)
Quarter: 2007Q3

REPORT INFORMATION
  Report Type: 
  Country: None (occurrence: None)
  Receive Date: 20070808
  Receipt Date: 20070725
  Transmission Date: 20080115
  Serious: Yes (Hospitalization)
  Sender: FDA-Public Use
  Company Number: 230665K07USA

PATIENT
  Age: 59 Year
  Sex: Male

DRUGS (2)
  1. REBIF [Suspect]
     Indication: MULTIPLE SCLEROSIS
     Dosage: 44 MCG, 3 IN 1 WEEKS, SUBCUTANEOUS
     Route: 058
     Dates: start: 20060724, end: 20070119
  2. REBIF [Suspect]
     Indication: MULTIPLE SCLEROSIS
     Dosage: 44 MCG, 3 IN 1 WEEKS, SUBCUTANEOUS
     Route: 058
     Dates: start: 20070101, end: 20070522

REACTIONS (8)
  - DIABETIC COMPLICATION [None]
  - DRUG DOSE OMISSION [None]
  - GANGRENE [None]
  - IMPAIRED HEALING [None]
  - SKIN ULCER [None]
  - THROMBOSIS [None]
  - TOE AMPUTATION [None]
  - TREMOR [None]
